FAERS Safety Report 7563790-5 (Version None)
Quarter: 2011Q2

REPORT INFORMATION
  Report Type: 
  Country: None (occurrence: None)
  Receive Date: 20110622
  Receipt Date: 20110617
  Transmission Date: 20111010
  Serious: No
  Sender: FDA-Public Use
  Company Number: US-TEVA-286347USA

PATIENT
  Sex: Female
  Weight: 49.94 kg

DRUGS (1)
  1. PLAN B ONE-STEP [Suspect]
     Indication: POST COITAL CONTRACEPTION
     Dosage: 1.5 MILLIGRAM;
     Route: 048
     Dates: start: 20110609, end: 20110609

REACTIONS (6)
  - VAGINAL DISCHARGE [None]
  - URINARY TRACT INFECTION [None]
  - CHLAMYDIAL INFECTION [None]
  - MENSTRUATION IRREGULAR [None]
  - DIZZINESS [None]
  - PELVIC PAIN [None]
